FAERS Safety Report 9887815 (Version 2)
Quarter: 2014Q1

REPORT INFORMATION
  Report Type: Report from Study
  Country: US (occurrence: US)
  Receive Date: 20140211
  Receipt Date: 20140211
  Transmission Date: 20141002
  Serious: Yes (Hospitalization)
  Sender: FDA-Public Use
  Company Number: US-ROCHE-1226185

PATIENT
  Age: 22 Year
  Sex: Female
  Weight: 55.84 kg

DRUGS (9)
  1. ACTEMRA [Suspect]
     Indication: RHEUMATOID ARTHRITIS
     Route: 065
     Dates: start: 20130227, end: 20130326
  2. NAPROXEN [Suspect]
     Indication: INFLAMMATION
     Route: 048
     Dates: start: 20130227, end: 20130326
  3. PREDNISONE [Concomitant]
     Indication: RHEUMATOID ARTHRITIS
     Route: 048
     Dates: start: 20130227, end: 20130326
  4. PREDNISONE [Concomitant]
     Route: 048
     Dates: start: 20130617, end: 20131116
  5. ZOFRAN [Concomitant]
     Indication: NAUSEA
     Dosage: 1 PILL EVERY 6 HOURS
     Route: 048
     Dates: start: 20130408, end: 20130520
  6. FOLIC ACID [Concomitant]
     Route: 048
     Dates: start: 20130420, end: 20131116
  7. COFFEE [Concomitant]
     Dosage: 1 SERVIN
     Route: 048
     Dates: start: 20130701, end: 20131116
  8. PLAQUENIL [Concomitant]
     Indication: RHEUMATOID ARTHRITIS
     Route: 048
     Dates: start: 20130617, end: 20131116
  9. BETAMETHASONE [Concomitant]
     Route: 050
     Dates: start: 20130904, end: 20130904

REACTIONS (2)
  - Rheumatoid arthritis [Unknown]
  - Maternal exposure during pregnancy [Unknown]
